FAERS Safety Report 8422239-0 (Version None)
Quarter: 2012Q2

REPORT INFORMATION
  Report Type: 
  Country: None (occurrence: None)
  Receive Date: 20120608
  Receipt Date: 20120531
  Transmission Date: 20120825
  Serious: Yes (Other)
  Sender: FDA-Public Use
  Company Number: FR-VERTEX PHARMACEUTICALS INC.-000000000000000810

PATIENT
  Sex: Female
  Weight: 63 kg

DRUGS (18)
  1. COPEGUS [Concomitant]
     Dates: start: 20111129, end: 20120417
  2. ESCITALOPRAM [Concomitant]
     Indication: DEPRESSION
     Dates: start: 20110824
  3. COPEGUS [Concomitant]
     Dates: start: 20111010, end: 20111123
  4. COPEGUS [Concomitant]
     Dates: start: 20110808, end: 20111010
  5. COPEGUS [Concomitant]
     Dates: start: 20120417, end: 20120525
  6. PEGASYS [Concomitant]
     Indication: HEPATITIS C
     Dates: start: 20110712, end: 20120525
  7. OXAZEPAM [Concomitant]
     Indication: DEPRESSION
     Dates: start: 20091030
  8. TRUVADA [Concomitant]
     Indication: HIV INFECTION
     Dates: start: 20070716
  9. REYATAZ [Concomitant]
     Indication: HIV INFECTION
     Dates: start: 20070716, end: 20120124
  10. MS CONTIN [Concomitant]
     Indication: DRUG DEPENDENCE
     Dates: start: 20100618, end: 20111027
  11. TELAPREVIR [Suspect]
     Indication: HEPATITIS C
     Dosage: DOSAGE FORM: TABLET
     Route: 048
     Dates: start: 20110808, end: 20111102
  12. COPEGUS [Concomitant]
     Indication: HEPATITIS C
     Dates: start: 20110712, end: 20110728
  13. LEVOTHYROXINE SODIUM [Concomitant]
     Indication: HYPERTHYROIDISM
     Dates: start: 20050308
  14. OMEPRAZOLE [Concomitant]
     Indication: GASTROOESOPHAGEAL REFLUX DISEASE
     Dates: start: 20110809
  15. LASIX [Concomitant]
     Indication: OEDEMA
     Dates: start: 20111004, end: 20111124
  16. NEORECORMON [Concomitant]
     Indication: ANAEMIA
     Dates: start: 20111004, end: 20120525
  17. BACTRIM [Concomitant]
     Indication: CD4 LYMPHOCYTES DECREASED
     Dates: start: 20110906
  18. MORPHINE SULFATE [Concomitant]
     Indication: DRUG DEPENDENCE
     Dates: start: 20111027

REACTIONS (1)
  - GAMMA-GLUTAMYLTRANSFERASE INCREASED [None]
